FAERS Safety Report 6925253-7 (Version None)
Quarter: 2010Q3

REPORT INFORMATION
  Report Type: 
  Country: None (occurrence: None)
  Receive Date: 20100816
  Receipt Date: 20100803
  Transmission Date: 20110219
  Serious: Yes (Other)
  Sender: FDA-Public Use
  Company Number: US-RB-013355-10

PATIENT
  Age: 65 Year
  Sex: Female

DRUGS (1)
  1. MUCINEX DM [Suspect]
     Dosage: PRODUCT TAKEN FOR A FEW MONTHS CONSECUTIVELY.
     Route: 048

REACTIONS (4)
  - FEELING ABNORMAL [None]
  - IMPATIENCE [None]
  - INCORRECT DRUG ADMINISTRATION DURATION [None]
  - PSYCHOMOTOR HYPERACTIVITY [None]
